FAERS Safety Report 7895610 (Version 7)
Quarter: 2020Q3

REPORT INFORMATION
  Report Type: Spontaneous
  Country: GB (occurrence: GB)
  Receive Date: 20110412
  Receipt Date: 20200928
  Transmission Date: 20201103
  Serious: Yes (Other)
  Sender: FDA-Public Use
  Company Number: GB-JNJFOC-2007302711

PATIENT
  Age: 54 Year
  Sex: Male

DRUGS (55)
  1. PIRITON [Suspect]
     Active Substance: CHLORPHENIRAMINE MALEATE
     Indication: ILL-DEFINED DISORDER
     Dosage: DAILY DOSE TEXT: 10MG 4/1DAYS
     Route: 042
     Dates: start: 2006
  2. FLUCONAZOLE. [Suspect]
     Active Substance: FLUCONAZOLE
     Indication: ILL-DEFINED DISORDER
     Dosage: 200 MG, 1X/DAY
     Route: 042
     Dates: start: 2006
  3. ROCEPHIN [Suspect]
     Active Substance: CEFTRIAXONE SODIUM
     Indication: ILL-DEFINED DISORDER
     Dosage: DAILY DOSE TEXT: 2 G
     Route: 042
     Dates: start: 2006
  4. POTASSIUM PHOSPHATE [Suspect]
     Active Substance: POTASSIUM PHOSPHATE
     Indication: ILL-DEFINED DISORDER
     Dosage: DAILY DOSE TEXT: UNKNOWN
     Route: 065
     Dates: start: 2006
  5. PROPOFOL. [Suspect]
     Active Substance: PROPOFOL
     Indication: ILL-DEFINED DISORDER
     Dosage: ADDITIONAL INFO: INFUSION
     Route: 065
     Dates: start: 2006
  6. TAZOCIN [Concomitant]
     Active Substance: PIPERACILLIN SODIUM\TAZOBACTAM SODIUM
     Dosage: INCREASED TO 4 TIMES DAILY BETWEEN 04/10/2006 AND 09/10/2006
     Route: 042
     Dates: start: 20061004, end: 20061009
  7. PARACETAMOL [Suspect]
     Active Substance: ACETAMINOPHEN
     Indication: ILL-DEFINED DISORDER
     Dosage: DAILY DOSE TEXT: UNKNOWN
     Route: 065
     Dates: start: 2006
  8. FUROSEMID                          /00032601/ [Suspect]
     Active Substance: FUROSEMIDE
     Dosage: DAILY DOSE: 20 MILLIGRAM(S)
     Route: 048
     Dates: start: 2006
  9. AMOXICILLIN. [Suspect]
     Active Substance: AMOXICILLIN
     Route: 048
     Dates: start: 20060913
  10. ALFENTANIL. [Suspect]
     Active Substance: ALFENTANIL
     Indication: ILL-DEFINED DISORDER
     Dosage: ADDITIONAL INFO: INFUSION, UNKNOWN/D
     Route: 042
     Dates: start: 2006
  11. HYDROCORTISONE. [Suspect]
     Active Substance: HYDROCORTISONE
     Indication: ILL-DEFINED DISORDER
     Dosage: 100 MILLIGRAM, QD
     Route: 042
     Dates: start: 2006
  12. HEPARIN SODIUM. [Suspect]
     Active Substance: HEPARIN SODIUM
     Indication: PRODUCT USED FOR UNKNOWN INDICATION
     Dosage: 3500 MICROGRAM, QD
     Route: 065
  13. PANTOPRAZOLE [Concomitant]
     Active Substance: PANTOPRAZOLE
     Indication: ILL-DEFINED DISORDER
     Dosage: DAILY DOSE TEXT: 40MG
     Route: 042
  14. ZOTON [Suspect]
     Active Substance: LANSOPRAZOLE
     Indication: ILL-DEFINED DISORDER
     Dosage: 30 MG
     Route: 065
     Dates: start: 2006
  15. SODIUM CHLORIDE. [Suspect]
     Active Substance: SODIUM CHLORIDE
     Indication: ILL-DEFINED DISORDER
     Dosage: 0.9 PER CENT SOLUTION
     Route: 042
     Dates: start: 2006
  16. ACTRAPID [Suspect]
     Active Substance: INSULIN HUMAN
     Indication: TOXIC EPIDERMAL NECROLYSIS
     Dosage: 50 UNITS/50ML
     Route: 042
     Dates: start: 2006
  17. DOBUTAMINE [Suspect]
     Active Substance: DOBUTAMINE HYDROCHLORIDE
     Indication: ILL-DEFINED DISORDER
     Dosage: ADDITIONAL INFO: INFUSION, UNKNOWN/D
     Route: 065
     Dates: start: 2006
  18. MAGNESIUM SULFATE. [Suspect]
     Active Substance: MAGNESIUM SULFATE
     Indication: ILL-DEFINED DISORDER
     Dosage: 10ML/50% 8MMOLS/50MLS?ADDITIONAL INFO: INFUSION
     Route: 065
     Dates: start: 2006
  19. OMEPRAZOLE. [Suspect]
     Active Substance: OMEPRAZOLE
     Indication: ILL-DEFINED DISORDER
     Dosage: DAILY DOSE TEXT: 40MG
     Route: 042
  20. THIAMIN [Suspect]
     Active Substance: THIAMINE
     Indication: ILL-DEFINED DISORDER
     Dosage: DAILY DOSE TEXT: 100 MG 1/1DAYS
     Route: 048
     Dates: start: 2006
  21. POTASSIUM CHLORIDE. [Suspect]
     Active Substance: POTASSIUM CHLORIDE
     Indication: ILL-DEFINED DISORDER
     Dosage: ADDITIONAL INFO: INFUSION.?40MMOLS/100ML INFUSION
     Route: 065
     Dates: start: 2006
  22. CLEXANE [Suspect]
     Active Substance: ENOXAPARIN SODIUM
     Indication: ILL-DEFINED DISORDER
     Dosage: DAILY DOSE TEXT: 20MG 1/1DAYS
     Route: 058
     Dates: start: 2006
  23. SANDO K (POTASSIUM BICARBONATE\POTASSIUM CHLORIDE) [Suspect]
     Active Substance: POTASSIUM BICARBONATE\POTASSIUM CHLORIDE
     Indication: ILL-DEFINED DISORDER
     Dosage: DAILY DOSE TEXT: 2 DL 3/1DAYS
     Route: 065
  24. TINZAPARIN [Suspect]
     Active Substance: TINZAPARIN
     Indication: ILL-DEFINED DISORDER
     Dosage: 3500 UG, 1X/DAY
     Route: 065
     Dates: start: 2006
  25. CIPROFLOX                          /00697202/ [Concomitant]
     Active Substance: CIPROFLOXACIN HYDROCHLORIDE
     Indication: ILL-DEFINED DISORDER
     Dosage: DAILY DOSE TEXT: 400MG 1/1DAYS
     Route: 042
  26. ERYTHROMYCIN. [Concomitant]
     Active Substance: ERYTHROMYCIN
     Indication: ILL-DEFINED DISORDER
     Dosage: DAILY DOSE TEXT: 250MG?ADDITIONAL INFO: NASOGASTRIC ROUTE
     Route: 065
  27. METOCLOPRAMIDE. [Concomitant]
     Active Substance: METOCLOPRAMIDE
     Indication: ILL-DEFINED DISORDER
     Dosage: DAILY DOSE TEXT: 10MG
     Route: 042
  28. ZOPICLONE [Concomitant]
     Active Substance: ZOPICLONE
     Indication: ILL-DEFINED DISORDER
     Dosage: DAILY DOSE TEXT: UNKNOWN
     Route: 048
  29. ASPIRINE [Concomitant]
     Active Substance: ASPIRIN
     Indication: ILL-DEFINED DISORDER
     Dosage: UNKNOWN/D
     Route: 048
  30. FUROSEMID                          /00032601/ [Suspect]
     Active Substance: FUROSEMIDE
     Indication: ILL-DEFINED DISORDER
     Dosage: 20 MG, 2X/DAY
     Route: 042
     Dates: start: 2006
  31. SIMVASTIN [Suspect]
     Active Substance: SIMVASTATIN
     Indication: ILL-DEFINED DISORDER
     Dosage: DAILY DOSE TEXT: 40MG 1/1DAYS
     Route: 042
     Dates: start: 2006
  32. SALBUTAMOL [Suspect]
     Active Substance: ALBUTEROL
     Indication: ILL-DEFINED DISORDER
     Dosage: ADDITIONAL INFO: NEBULISER, AS NECESSARY
     Route: 065
     Dates: start: 2006
  33. AQUASEPT [Suspect]
     Active Substance: TRICLOSAN
     Indication: ILL-DEFINED DISORDER
     Dosage: DAILY DOSE TEXT: UNKNOWN
     Route: 065
     Dates: start: 2006
  34. SODIUM BICARBONATE. [Suspect]
     Active Substance: SODIUM BICARBONATE
     Indication: ILL-DEFINED DISORDER
     Dosage: ADMINISTRATION OVER AN HOUR
     Route: 042
     Dates: start: 2006
  35. PHYTOMENADIONE [Suspect]
     Active Substance: PHYTONADIONE
     Indication: ILL-DEFINED DISORDER
     Dosage: DAILY DOSE TEXT: UNKNOWN
     Route: 065
     Dates: start: 2006
  36. FLAMAZINE [Suspect]
     Active Substance: SILVER SULFADIAZINE
     Indication: ILL-DEFINED DISORDER
     Dosage: UNKNOWN/D
     Route: 061
     Dates: start: 2006
  37. AMOXICILLIN. [Concomitant]
     Active Substance: AMOXICILLIN
     Indication: PRODUCT USED FOR UNKNOWN INDICATION
     Dosage: DAILY DOSE TEXT: 250MG
     Route: 048
     Dates: start: 20060913
  38. TAZOCIN [Concomitant]
     Active Substance: PIPERACILLIN SODIUM\TAZOBACTAM SODIUM
     Indication: PRODUCT USED FOR UNKNOWN INDICATION
     Route: 042
     Dates: start: 20061004, end: 20061009
  39. LACTULOSE. [Suspect]
     Active Substance: LACTULOSE
     Indication: ILL-DEFINED DISORDER
     Dosage: DAILY DOSE TEXT: 10 ML?ADDITIONAL INFO: NASOGASTRIC
     Route: 065
     Dates: start: 2006
  40. BACTROBAN [Suspect]
     Active Substance: MUPIROCIN\MUPIROCIN CALCIUM
     Indication: ILL-DEFINED DISORDER
     Dosage: DAILY DOSE TEXT: UNKNOWN, UNKNOWN/D
     Route: 065
     Dates: start: 2006
  41. NOREPINEPHRINE                     /00127502/ [Suspect]
     Active Substance: NOREPINEPHRINE BITARTRATE
     Indication: ILL-DEFINED DISORDER
     Dosage: DAILY DOSE TEXT: UNKNOWN?ADDITIONAL INFO: INFUSION
     Route: 065
     Dates: start: 2006
  42. SODIUM HYDROGEN CARBONATE [Suspect]
     Active Substance: SODIUM BICARBONATE
     Indication: PRODUCT USED FOR UNKNOWN INDICATION
     Dosage: 100 MG HOURLY
     Route: 042
  43. FRAGMIN [Suspect]
     Active Substance: DALTEPARIN SODIUM
     Indication: ILL-DEFINED DISORDER
     Dosage: DAILY DOSE: 2500 INTERNATIONAL UNITS, 2500 IU, QD
     Route: 058
     Dates: start: 2006
  44. LORAZEPAM. [Suspect]
     Active Substance: LORAZEPAM
     Indication: ILL-DEFINED DISORDER
     Dosage: 1?2 MG ONCE ONLY
     Route: 065
     Dates: start: 2006
  45. AMOXICILLIN. [Suspect]
     Active Substance: AMOXICILLIN
     Indication: ILL-DEFINED DISORDER
     Dosage: 3 G, 1X/DAY
     Route: 042
     Dates: start: 20060913
  46. CALCIUM CHLORIDE. [Suspect]
     Active Substance: CALCIUM CHLORIDE
     Indication: ILL-DEFINED DISORDER
     Dosage: DAILY DOSE TEXT: UNKNOWN
     Route: 065
     Dates: start: 2006
  47. CALCIUM GLUCONATE. [Suspect]
     Active Substance: CALCIUM GLUCONATE
     Indication: ILL-DEFINED DISORDER
     Dosage: DAILY DOSE TEXT: 10ML
     Route: 042
     Dates: start: 2006
  48. SANDO K (POTASSIUM BICARBONATE\POTASSIUM CHLORIDE) [Suspect]
     Active Substance: POTASSIUM BICARBONATE\POTASSIUM CHLORIDE
     Indication: PRODUCT USED FOR UNKNOWN INDICATION
     Dosage: DAILY DOSE: 6 DOSAGE FORM, 2 DF, TID
     Route: 061
     Dates: start: 2006
  49. SULFADIAZINE. [Suspect]
     Active Substance: SULFADIAZINE
     Indication: PRODUCT USED FOR UNKNOWN INDICATION
     Route: 061
  50. SODIUM HYDROGEN CARBONATE [Suspect]
     Active Substance: SODIUM BICARBONATE
     Dosage: 100 ML HOURLY
     Route: 042
  51. ATROVENT [Concomitant]
     Active Substance: IPRATROPIUM BROMIDE
     Indication: ILL-DEFINED DISORDER
     Dosage: DAILY DOSE TEXT: AS NECESSARY, AS REQUIRED?ADDITIONAL INFO: NEBULISER
     Route: 048
  52. CO?AMOXICLAV [Concomitant]
     Active Substance: AMOXICILLIN\CLAVULANATE POTASSIUM
     Indication: PRODUCT USED FOR UNKNOWN INDICATION
     Dosage: DAILY DOSE TEXT: 375MG 3/1DAYS
     Route: 065
     Dates: start: 20060913
  53. MIDODRINE [Concomitant]
     Active Substance: MIDODRINE
     Indication: ILL-DEFINED DISORDER
     Dosage: DAILY DOSE TEXT: UNKNOWN
     Route: 048
  54. TAZOCIN [Concomitant]
     Active Substance: PIPERACILLIN SODIUM\TAZOBACTAM SODIUM
     Indication: ILL-DEFINED DISORDER
     Route: 042
  55. VANCOMYCIN [Concomitant]
     Active Substance: VANCOMYCIN
     Indication: ILL-DEFINED DISORDER
     Dosage: DAILY DOSE TEXT: 1G 1/1DAYS
     Route: 042

REACTIONS (1)
  - Toxic epidermal necrolysis [Unknown]

NARRATIVE: CASE EVENT DATE: 2006
